FAERS Safety Report 6644848-1 (Version None)
Quarter: 2010Q1

REPORT INFORMATION
  Report Type: 
  Country: None (occurrence: None)
  Receive Date: 20100322
  Receipt Date: 20100308
  Transmission Date: 20100710
  Serious: Yes (Hospitalization)
  Sender: FDA-Public Use
  Company Number: FR-SANOFI-AVENTIS-2010SA013060

PATIENT
  Age: 87 Year
  Sex: Male

DRUGS (4)
  1. ALFUZOSIN HCL [Suspect]
     Route: 048
     Dates: start: 20090909, end: 20091112
  2. MODOPAR [Suspect]
     Indication: PARKINSON'S DISEASE
     Route: 048
     Dates: start: 20091106, end: 20091116
  3. NEXIUM /UNK/ [Suspect]
     Route: 048
     Dates: start: 20091108, end: 20091117
  4. FORLAX [Concomitant]

REACTIONS (3)
  - DRUG RASH WITH EOSINOPHILIA AND SYSTEMIC SYMPTOMS [None]
  - EOSINOPHILIA [None]
  - RASH PRURITIC [None]
